FAERS Safety Report 9983517 (Version 1)
Quarter: 2014Q1

REPORT INFORMATION
  Report Type: Report from Study
  Country: LB (occurrence: LB)
  Receive Date: 20140307
  Receipt Date: 20140307
  Transmission Date: 20141002
  Serious: Yes (Hospitalization)
  Sender: FDA-Public Use
  Company Number: PHHY2013LB155653

PATIENT
  Age: 78 Year
  Sex: Female

DRUGS (6)
  1. ACLASTA [Suspect]
     Dosage: UNK UKN, UNK
     Route: 042
  2. ACLASTA [Suspect]
     Dosage: UNK UKN, UNK
     Route: 042
     Dates: start: 20130503
  3. COAPROVEL [Concomitant]
     Dosage: UNK UKN, QD
     Route: 048
  4. PRADAXA [Concomitant]
     Dosage: 110 MG, DAILY
     Route: 048
  5. LIPODAR [Concomitant]
     Dosage: 20 MG, QD
     Route: 048
  6. BISOHEXAL [Concomitant]
     Dosage: 20 MG, QD
     Route: 048

REACTIONS (1)
  - Urinary tract infection [Unknown]
